FAERS Safety Report 15489206 (Version 1)
Quarter: 2018Q4

REPORT INFORMATION
  Report Type: Spontaneous
  Country: US (occurrence: US)
  Receive Date: 20181011
  Receipt Date: 20181011
  Transmission Date: 20190205
  Serious: Yes (Hospitalization)
  Sender: FDA-Public Use
  Company Number: None

PATIENT
  Age: 76 Year
  Sex: Female
  Weight: 77.4 kg

DRUGS (1)
  1. PERMETHRIN 5% CREAM [Suspect]
     Active Substance: PERMETHRIN
     Indication: ACARODERMATITIS
     Dosage: ?          OTHER FREQUENCY:APPLY ONCE;?
     Route: 061
     Dates: start: 20180929, end: 20180929

REACTIONS (5)
  - Rash generalised [None]
  - Urticaria [None]
  - Pain [None]
  - Anaphylactic reaction [None]
  - Swelling [None]

NARRATIVE: CASE EVENT DATE: 20180929
